FAERS Safety Report 6630856-3 (Version None)
Quarter: 2010Q1

REPORT INFORMATION
  Report Type: 
  Country: None (occurrence: None)
  Receive Date: 20100311
  Receipt Date: 20100308
  Transmission Date: 20100710
  Serious: Yes (Death)
  Sender: FDA-Public Use
  Company Number: US-AMGEN-ICO252247

PATIENT
  Sex: Female

DRUGS (18)
  1. DARBEPOETIN ALFA [Suspect]
     Indication: RENAL FAILURE CHRONIC
     Route: 058
     Dates: start: 20070606, end: 20071107
  2. PLAVIX [Concomitant]
     Route: 048
     Dates: start: 20070601
  3. LIPITOR [Concomitant]
     Route: 048
     Dates: start: 20030902
  4. HUMULIN R [Concomitant]
     Route: 058
     Dates: start: 20060307
  5. COMBIVENT [Concomitant]
     Route: 055
     Dates: start: 20011101
  6. BUMETANIDE [Concomitant]
     Route: 048
     Dates: start: 20030404
  7. ASPIRIN [Concomitant]
     Route: 048
     Dates: start: 20020512
  8. METOPROLOL [Concomitant]
     Route: 048
     Dates: start: 20040428
  9. CYMBALTA [Concomitant]
     Route: 048
     Dates: start: 20070130
  10. ACTONEL [Concomitant]
     Dates: start: 20061109
  11. ALLOPURINOL [Concomitant]
     Route: 048
     Dates: start: 20070101
  12. INDOMETHACIN [Concomitant]
     Route: 048
     Dates: start: 20070516
  13. FERROUS SULFATE TAB [Concomitant]
     Route: 048
     Dates: start: 20070201
  14. MULTIPLE VITAMINS [Concomitant]
     Route: 048
     Dates: start: 20070601
  15. CALCIUM [Concomitant]
     Route: 048
     Dates: start: 20070620
  16. COUMADIN [Concomitant]
     Route: 048
     Dates: start: 20071022
  17. DIGOXIN [Concomitant]
     Route: 048
     Dates: start: 20071009
  18. COLACE [Concomitant]
     Route: 048
     Dates: start: 20071107

REACTIONS (1)
  - CARDIAC ARREST [None]
